FAERS Safety Report 4572645-X (Version None)
Quarter: 2005Q1

REPORT INFORMATION
  Report Type: 
  Country: None (occurrence: None)
  Receive Date: 20050208
  Receipt Date: 20041104
  Transmission Date: 20050727
  Serious: No
  Sender: FDA-Public Use
  Company Number: US-GLAXOSMITHKLINE-A0532693A

PATIENT

DRUGS (3)
  1. PAXIL CR [Suspect]
     Indication: DEPRESSION
     Dosage: 12.5MG PER DAY
     Route: 048
     Dates: start: 20041028
  2. BUSPAR [Concomitant]
  3. ZANTAC [Concomitant]

REACTIONS (4)
  - BURNING SENSATION [None]
  - PALPITATIONS [None]
  - PARAESTHESIA [None]
  - SKIN BURNING SENSATION [None]
